FAERS Safety Report 6163540-3 (Version None)
Quarter: 2009Q2

REPORT INFORMATION
  Report Type: 
  Country: None (occurrence: None)
  Receive Date: 20090420
  Receipt Date: 20090420
  Transmission Date: 20091009
  Serious: Yes (Other)
  Sender: FDA-Public Use
  Company Number: None

PATIENT
  Age: 47 Year
  Sex: Female
  Weight: 56.6996 kg

DRUGS (3)
  1. ZOLPIDEM [Suspect]
     Indication: INSOMNIA
     Dosage: 10 MG 1 DAILY AT BEDTIME PO
     Route: 048
     Dates: start: 20071119, end: 20090306
  2. DEPAKOTE [Concomitant]
  3. BUPROPRIEN [Concomitant]

REACTIONS (4)
  - AMNESIA [None]
  - CRIME [None]
  - IMPRISONMENT [None]
  - SOMNAMBULISM [None]
